FAERS Safety Report 5469358-9 (Version None)
Quarter: 2007Q3

REPORT INFORMATION
  Report Type: 
  Country: None (occurrence: None)
  Receive Date: 20070924
  Receipt Date: 20070906
  Transmission Date: 20080115
  Serious: No
  Sender: FDA-Public Use
  Company Number: 2007-164524-NL

PATIENT
  Age: 21 Year
  Sex: Female

DRUGS (1)
  1. ETONOGESTREL [Suspect]
     Dosage: DF SUBDERMAL
     Route: 059
     Dates: start: 20070202, end: 20070822

REACTIONS (4)
  - ALOPECIA [None]
  - BODY HEIGHT INCREASED [None]
  - HEADACHE [None]
  - HYPOTHALAMO-PITUITARY DISORDER [None]
